FAERS Safety Report 11138091 (Version 8)
Quarter: 2020Q2

REPORT INFORMATION
  Report Type: Report from Study
  Country: US (occurrence: US)
  Receive Date: 20150526
  Receipt Date: 20200406
  Transmission Date: 20200713
  Serious: Yes (Death, Hospitalization)
  Sender: FDA-Public Use
  Company Number: US-ACTELION-A-NJ2015-111634

PATIENT
  Age: 82 Year
  Sex: Female
  Weight: 65.76 kg

DRUGS (16)
  1. OPSUMIT [Suspect]
     Active Substance: MACITENTAN
     Indication: PULMONARY HYPERTENSION
     Dosage: 10 MG, QD
     Route: 048
     Dates: start: 20140819
  2. IRON [Concomitant]
     Active Substance: IRON
     Dosage: UNK
  3. FERROUS SULFATE. [Concomitant]
     Active Substance: FERROUS SULFATE
  4. OMEPRAZOLE. [Concomitant]
     Active Substance: OMEPRAZOLE
  5. NORTRIPTYLINE [Concomitant]
     Active Substance: NORTRIPTYLINE
  6. OPSUMIT [Suspect]
     Active Substance: MACITENTAN
     Dosage: UNK
     Route: 048
  7. TYVASO [Concomitant]
     Active Substance: TREPROSTINIL
     Dosage: 40 MG, QD
     Dates: end: 20180219
  8. AMLODIPINE [Concomitant]
     Active Substance: AMLODIPINE BESYLATE
     Dosage: 2.5 MG, TID
  9. WARFARIN [Concomitant]
     Active Substance: WARFARIN
     Dosage: 3 PILLS, QID
  10. FUROSEMIDE. [Concomitant]
     Active Substance: FUROSEMIDE
     Dosage: 40 MG, QD
  11. SIMVASTATIN. [Concomitant]
     Active Substance: SIMVASTATIN
  12. AMIODARONE [Concomitant]
     Active Substance: AMIODARONE
     Dosage: 100 MG, QD
  13. OPSUMIT [Suspect]
     Active Substance: MACITENTAN
     Dosage: 10 MG, QD
     Route: 048
     Dates: start: 20140819
  14. DICYCLOMINE [Concomitant]
     Active Substance: DICYCLOMINE HYDROCHLORIDE
     Dosage: 10 MG, UNK
  15. LOSARTAN. [Concomitant]
     Active Substance: LOSARTAN
  16. POTASSIUM [Concomitant]
     Active Substance: POTASSIUM

REACTIONS (27)
  - Cardiac failure chronic [Unknown]
  - Constipation [Unknown]
  - Fatigue [Recovered/Resolved]
  - Cardiac failure congestive [Unknown]
  - Fluid retention [Unknown]
  - Dizziness [Recovered/Resolved]
  - Asthenia [Recovered/Resolved]
  - Hypoxia [Recovered/Resolved]
  - Weight increased [Recovered/Resolved]
  - Oedema [Recovered/Resolved]
  - Fluid overload [Unknown]
  - Malaise [Unknown]
  - Death [Fatal]
  - Chest discomfort [Recovered/Resolved]
  - Pulmonary arterial hypertension [Unknown]
  - Pneumonia [Unknown]
  - Flushing [Recovered/Resolved]
  - Intestinal obstruction [Unknown]
  - Abdominal pain [Unknown]
  - Vomiting [Unknown]
  - Bronchitis [Recovered/Resolved]
  - Right ventricular failure [Recovered/Resolved]
  - Nausea [Unknown]
  - Dyspnoea [Unknown]
  - Gastrointestinal haemorrhage [Unknown]
  - Oedema peripheral [Unknown]
  - Chest pain [Recovered/Resolved]

NARRATIVE: CASE EVENT DATE: 20150510
